FAERS Safety Report 9197584 (Version 1)
Quarter: 2013Q1

REPORT INFORMATION
  Report Type: Spontaneous
  Country: CH (occurrence: CH)
  Receive Date: 20130328
  Receipt Date: 20130328
  Transmission Date: 20140127
  Serious: Yes (Other)
  Sender: FDA-Public Use
  Company Number: CH-JNJFOC-20130313167

PATIENT
  Age: 32 Year
  Sex: Female

DRUGS (2)
  1. REGAINE [Suspect]
     Route: 061
  2. REGAINE [Suspect]
     Indication: ANDROGENETIC ALOPECIA
     Dosage: 1ML/DAY
     Route: 061
     Dates: start: 20120210, end: 20120320

REACTIONS (4)
  - Exposure during pregnancy [Recovered/Resolved]
  - Hypothyroidism [Unknown]
  - Iron deficiency anaemia [Unknown]
  - Underdose [Unknown]
